FAERS Safety Report 7828184-3 (Version None)
Quarter: 2011Q4

REPORT INFORMATION
  Report Type: 
  Country: None (occurrence: None)
  Receive Date: 20111020
  Receipt Date: 20111006
  Transmission Date: 20120403
  Serious: Yes (Hospitalization)
  Sender: FDA-Public Use
  Company Number: US-ELI_LILLY_AND_COMPANY-US201104006975

PATIENT
  Sex: Female

DRUGS (23)
  1. METFORMIN HCL [Concomitant]
  2. FORTEO [Suspect]
     Dosage: 20 UG, QD
  3. GLIPIZIDE [Concomitant]
  4. FORTEO [Suspect]
     Dosage: 20 UG, QD
  5. BYETTA [Concomitant]
  6. SPIRIVA [Concomitant]
  7. XANAX [Concomitant]
  8. PRAVASTATIN [Concomitant]
  9. SINGULAIR [Concomitant]
  10. METOPROLOL TARTRATE [Concomitant]
  11. INSULIN [Concomitant]
  12. FORTEO [Suspect]
     Dosage: 20 UG, QD
  13. ENALAPRIL MALEATE [Concomitant]
  14. ADVAIR DISKUS 100/50 [Concomitant]
  15. PREDNISONE [Concomitant]
  16. FORTEO [Suspect]
     Dosage: 20 UG, QD
  17. FLONASE [Concomitant]
  18. RAMIPRIL [Concomitant]
  19. TOPROL-XL [Concomitant]
  20. FORTEO [Suspect]
     Indication: OSTEOPOROSIS
     Dosage: 20 UG, QD
  21. AVELOX [Concomitant]
  22. CLARITIN [Concomitant]
  23. ANAPRIL [Concomitant]

REACTIONS (12)
  - DIABETES MELLITUS [None]
  - CHRONIC OBSTRUCTIVE PULMONARY DISEASE [None]
  - MEMORY IMPAIRMENT [None]
  - HYPOAESTHESIA [None]
  - BLOOD GLUCOSE INCREASED [None]
  - BLOOD GLUCOSE DECREASED [None]
  - NERVOUS SYSTEM DISORDER [None]
  - INJECTION SITE PAIN [None]
  - MYALGIA [None]
  - DYSPNOEA [None]
  - RHEUMATOID ARTHRITIS [None]
  - ARTHRALGIA [None]
